FAERS Safety Report 15128867 (Version 4)
Quarter: 2018Q4

REPORT INFORMATION
  Report Type: Spontaneous
  Country: GB (occurrence: GB)
  Receive Date: 20180711
  Receipt Date: 20181010
  Transmission Date: 20190204
  Serious: Yes (Other)
  Sender: FDA-Public Use
  Company Number: GB-TEVA-2018-GB-921404

PATIENT
  Age: 72 Year
  Sex: Female

DRUGS (1)
  1. DOXAZOSIN [Suspect]
     Active Substance: DOXAZOSIN\DOXAZOSIN MESYLATE
     Indication: HYPERTENSION
     Dosage: 4 MILLIGRAM DAILY;
     Route: 048

REACTIONS (11)
  - Drug ineffective [Unknown]
  - Hypertension [Unknown]
  - Product appearance confusion [Unknown]
  - Cerebrovascular accident [Unknown]
  - Heart rate increased [Unknown]
  - Cardiomegaly [Recovered/Resolved]
  - Sleep disorder [Unknown]
  - Tachycardia [Unknown]
  - Muscle twitching [Unknown]
  - Product substitution issue [Unknown]
  - Feeling abnormal [Recovered/Resolved]

NARRATIVE: CASE EVENT DATE: 20180703
